FAERS Safety Report 7556519-8 (Version None)
Quarter: 2011Q2

REPORT INFORMATION
  Report Type: 
  Country: None (occurrence: None)
  Receive Date: 20110609
  Receipt Date: 20110606
  Transmission Date: 20111010
  Serious: Yes (Life-Threatening)
  Sender: FDA-Public Use
  Company Number: 2011SP023237

PATIENT
  Age: 29 Year
  Sex: Female

DRUGS (3)
  1. FOLLISTIM AQ [Suspect]
     Indication: PRODUCT USED FOR UNKNOWN INDICATION
     Dosage: 150 IU; QD; SC
     Route: 058
     Dates: start: 20110223, end: 20110305
  2. ORGALUTRAN (GANIRELIX /01453701/) [Suspect]
     Indication: PRODUCT USED FOR UNKNOWN INDICATION
     Dosage: 0.25 MG; QD; SC
     Route: 058
     Dates: start: 20110228, end: 20110305
  3. CHORIONIC GONADOTROPIN [Suspect]
     Indication: PRODUCT USED FOR UNKNOWN INDICATION
     Dates: start: 20110305, end: 20110305

REACTIONS (2)
  - PLEURAL EFFUSION [None]
  - OVARIAN HYPERSTIMULATION SYNDROME [None]
